FAERS Safety Report 6254036-9 (Version None)
Quarter: 2009Q3

REPORT INFORMATION
  Report Type: 
  Country: None (occurrence: None)
  Receive Date: 20090702
  Receipt Date: 20090622
  Transmission Date: 20100115
  Serious: Yes (Hospitalization)
  Sender: FDA-Public Use
  Company Number: SE-BAYER-200915869GPV

PATIENT
  Age: 45 Year
  Sex: Female
  Weight: 62 kg

DRUGS (4)
  1. MIRENA [Suspect]
     Indication: DRUG USE FOR UNKNOWN INDICATION
     Route: 015
  2. MIRENA [Suspect]
     Route: 015
     Dates: start: 20051012
  3. KAVEPENIN [Concomitant]
     Indication: TONSILLITIS
     Dates: start: 20081101
  4. TREO COMP (ASA) [Concomitant]
     Indication: OROPHARYNGEAL PAIN
     Dates: start: 20081101

REACTIONS (2)
  - JUGULAR VEIN THROMBOSIS [None]
  - VAGINAL HAEMORRHAGE [None]
